FAERS Safety Report 18584787 (Version 11)
Quarter: 2022Q2

REPORT INFORMATION
  Report Type: Report from Study
  Country: US (occurrence: US)
  Receive Date: 20201207
  Receipt Date: 20220628
  Transmission Date: 20220721
  Serious: No
  Sender: FDA-Public Use
  Company Number: US-GLAXOSMITHKLINE-US2020AMR233655

PATIENT

DRUGS (1)
  1. BELANTAMAB MAFODOTIN [Suspect]
     Active Substance: BELANTAMAB MAFODOTIN
     Indication: Product used for unknown indication
     Dosage: UNK
     Dates: start: 20201016

REACTIONS (7)
  - Keratopathy [Unknown]
  - Visual acuity reduced [Unknown]
  - Photophobia [Unknown]
  - Night blindness [Unknown]
  - Ocular toxicity [Unknown]
  - Illness [Unknown]
  - Corneal disorder [Unknown]

NARRATIVE: CASE EVENT DATE: 20201118
